FAERS Safety Report 4512738-6 (Version None)
Quarter: 2004Q4

REPORT INFORMATION
  Report Type: 
  Country: None (occurrence: None)
  Receive Date: 20040928
  Receipt Date: 20040706
  Transmission Date: 20050328
  Serious: No
  Sender: FDA-Public Use
  Company Number: 04P-163-0265813-00

PATIENT
  Age: 58 Year
  Sex: Female
  Weight: 96.1626 kg

DRUGS (6)
  1. HUMIRA [Suspect]
     Indication: RHEUMATOID ARTHRITIS
     Dosage: 40 MG, 1 IN 2 WK, SUBCUTANEOUS
     Route: 058
     Dates: start: 20030501
  2. MELOXICAM [Suspect]
     Indication: OSTEOARTHRITIS
     Dates: start: 20040401, end: 20040501
  3. MELOXICAM [Suspect]
     Indication: OSTEOARTHRITIS
     Dates: start: 20040601, end: 20040601
  4. ROFECOXIB [Suspect]
     Indication: OSTEOARTHRITIS
     Dates: start: 20040702, end: 20040704
  5. RISEDRONATE SODIUM [Concomitant]
  6. PREDNISONE [Concomitant]

REACTIONS (6)
  - ABDOMINAL PAIN [None]
  - DIARRHOEA [None]
  - DYSPEPSIA [None]
  - INFLUENZA LIKE ILLNESS [None]
  - PARANASAL SINUS HYPERSECRETION [None]
  - SOMNOLENCE [None]
